FAERS Safety Report 14890104 (Version 4)
Quarter: 2025Q4

REPORT INFORMATION
  Report Type: Report from Study
  Country: CA (occurrence: CA)
  Receive Date: 20180514
  Receipt Date: 20251222
  Transmission Date: 20260117
  Serious: Yes (Hospitalization, Other)
  Sender: ROCHE
  Company Number: CA-002147023-PHHY2017CA170494

PATIENT
  Age: 81 Year
  Sex: Female

DRUGS (36)
  1. XOLAIR [Suspect]
     Active Substance: OMALIZUMAB
     Indication: Asthma
     Route: 058
     Dates: start: 20160322
  2. XOLAIR [Suspect]
     Active Substance: OMALIZUMAB
     Route: 058
  3. XOLAIR [Suspect]
     Active Substance: OMALIZUMAB
     Dosage: 375 MG, BIW
     Route: 058
     Dates: start: 20180222
  4. XOLAIR [Suspect]
     Active Substance: OMALIZUMAB
     Dosage: UNK
     Route: 058
  5. XOLAIR [Suspect]
     Active Substance: OMALIZUMAB
     Dosage: 375 MG, BIW
     Route: 058
     Dates: start: 20180418
  6. XOLAIR [Suspect]
     Active Substance: OMALIZUMAB
     Route: 058
     Dates: start: 20180814
  7. XOLAIR [Suspect]
     Active Substance: OMALIZUMAB
     Route: 058
     Dates: start: 20160323
  8. XOLAIR [Suspect]
     Active Substance: OMALIZUMAB
     Route: 058
     Dates: start: 20180911
  9. XOLAIR [Suspect]
     Active Substance: OMALIZUMAB
     Route: 058
     Dates: start: 20190130
  10. XOLAIR [Suspect]
     Active Substance: OMALIZUMAB
     Route: 058
     Dates: start: 20190313
  11. XOLAIR [Suspect]
     Active Substance: OMALIZUMAB
     Route: 058
     Dates: start: 20190509
  12. XOLAIR [Suspect]
     Active Substance: OMALIZUMAB
     Route: 058
     Dates: start: 20190522
  13. XOLAIR [Suspect]
     Active Substance: OMALIZUMAB
     Route: 058
     Dates: start: 20190717
  14. XOLAIR [Suspect]
     Active Substance: OMALIZUMAB
     Route: 058
     Dates: start: 20191024
  15. XOLAIR [Suspect]
     Active Substance: OMALIZUMAB
     Route: 058
     Dates: start: 20210603
  16. XOLAIR [Suspect]
     Active Substance: OMALIZUMAB
     Route: 058
     Dates: start: 20211216
  17. XOLAIR [Suspect]
     Active Substance: OMALIZUMAB
     Route: 058
     Dates: start: 20230110
  18. XOLAIR [Suspect]
     Active Substance: OMALIZUMAB
     Route: 058
     Dates: start: 20230124
  19. XOLAIR [Suspect]
     Active Substance: OMALIZUMAB
     Route: 058
  20. PERINDOPRIL [Suspect]
     Active Substance: PERINDOPRIL
     Indication: Product used for unknown indication
  21. SYMBICORT [Concomitant]
     Active Substance: BUDESONIDE\FORMOTEROL FUMARATE DIHYDRATE
     Indication: Product used for unknown indication
     Dosage: UNK UNK, BID
  22. SPIRIVA [Concomitant]
     Active Substance: TIOTROPIUM BROMIDE MONOHYDRATE
     Indication: Product used for unknown indication
     Dosage: 18 UG, QD
  23. VENTOLIN [Concomitant]
     Active Substance: ALBUTEROL SULFATE
     Indication: Product used for unknown indication
     Dosage: 1 DF, QID
     Route: 055
  24. PREDNISONE [Concomitant]
     Active Substance: PREDNISONE
     Indication: Product used for unknown indication
     Dosage: 1 DF, QD
     Route: 048
  25. ITRACONAZOLE [Concomitant]
     Active Substance: ITRACONAZOLE
     Indication: Product used for unknown indication
     Dosage: 2 DF, BID
     Route: 048
  26. INSULIN NOS [Concomitant]
     Active Substance: INSULIN NOS
     Indication: Product used for unknown indication
     Dosage: 1 DF, QD
  27. ALENDRONATE [Concomitant]
     Active Substance: ALENDRONATE SODIUM
     Route: 048
  28. FUROSEMIDE [Concomitant]
     Active Substance: FUROSEMIDE
  29. GLICLAZIDE [Concomitant]
     Active Substance: GLICLAZIDE
     Route: 048
  30. METFORMIN [Concomitant]
     Active Substance: METFORMIN HYDROCHLORIDE
     Route: 048
  31. ZANTAC [Concomitant]
     Active Substance: RANITIDINE HYDROCHLORIDE
  32. NAPROXEN [Concomitant]
     Active Substance: NAPROXEN
  33. LASIX [Concomitant]
     Active Substance: FUROSEMIDE
  34. CALCIUM [Concomitant]
     Active Substance: CALCIUM
  35. OMEGA 3 [Concomitant]
     Active Substance: CAPSAICIN
  36. B12 [Concomitant]

REACTIONS (35)
  - Sensitivity to weather change [Unknown]
  - Lower respiratory tract congestion [Recovering/Resolving]
  - Nasopharyngitis [Recovered/Resolved]
  - Diarrhoea [Recovered/Resolved]
  - Decreased appetite [Unknown]
  - Asthenia [Unknown]
  - Rectal haemorrhage [Recovered/Resolved]
  - Fatigue [Unknown]
  - Malaise [Recovered/Resolved]
  - Dysphonia [Unknown]
  - Dyspnoea [Unknown]
  - Haemorrhoids [Recovered/Resolved]
  - Nausea [Unknown]
  - Cough [Recovered/Resolved]
  - Hypoaesthesia [Unknown]
  - Chills [Unknown]
  - Viral infection [Unknown]
  - Vomiting [Recovered/Resolved]
  - Influenza like illness [Unknown]
  - Diverticulitis [Unknown]
  - Transient ischaemic attack [Unknown]
  - Cerebrovascular accident [Unknown]
  - Productive cough [Recovering/Resolving]
  - Oropharyngeal pain [Recovered/Resolved]
  - Gastroenteritis viral [Recovered/Resolved]
  - Nasal congestion [Recovering/Resolving]
  - Localised infection [Recovering/Resolving]
  - SARS-CoV-2 test positive [Unknown]
  - Rhinorrhoea [Recovered/Resolved]
  - Cough [Unknown]
  - Haematoma [Unknown]
  - Limb injury [Recovering/Resolving]
  - Wound infection [Recovering/Resolving]
  - Incorrect dose administered [Unknown]
  - Respiration abnormal [Unknown]

NARRATIVE: CASE EVENT DATE: 20171112
